FAERS Safety Report 5772099-1 (Version None)
Quarter: 2008Q2

REPORT INFORMATION
  Report Type: 
  Country: None (occurrence: None)
  Receive Date: 20080612
  Receipt Date: 20080612
  Transmission Date: 20081010
  Serious: Yes (Life-Threatening, Disabling)
  Sender: FDA-Public Use
  Company Number: None

PATIENT
  Age: 98 Year
  Sex: Female
  Weight: 58.514 kg

DRUGS (1)
  1. DIGITEK 125MCG ACTAVIS TOTOWA LLC MYLAN PHARMACEUTICALS [Suspect]
     Indication: HEART RATE INCREASED
     Dosage: 1 TAB PO D
     Route: 048
     Dates: start: 20080304, end: 20080408

REACTIONS (14)
  - ACTIVITIES OF DAILY LIVING IMPAIRED [None]
  - ASTHENIA [None]
  - CONSTIPATION [None]
  - DYSPHAGIA [None]
  - DYSSTASIA [None]
  - EYE DISORDER [None]
  - FEELING ABNORMAL [None]
  - GAIT DISTURBANCE [None]
  - JOINT SWELLING [None]
  - MUSCULAR WEAKNESS [None]
  - NAUSEA [None]
  - OEDEMA PERIPHERAL [None]
  - TREMOR [None]
  - WEIGHT DECREASED [None]
